FAERS Safety Report 4354227-8 (Version None)
Quarter: 2004Q2

REPORT INFORMATION
  Report Type: 
  Country: None (occurrence: None)
  Receive Date: 20040506
  Receipt Date: 20040325
  Transmission Date: 20050107
  Serious: Yes (Other)
  Sender: FDA-Public Use
  Company Number: AUV-24

PATIENT
  Age: 52 Year
  Sex: Female

DRUGS (2)
  1. LAMIVUDINE [Suspect]
     Route: 048
     Dates: start: 20040303, end: 20040306
  2. ESOMEPRAZOLE [Concomitant]
     Indication: PEPTIC ULCER
     Dosage: 1TAB PER DAY
     Route: 048
     Dates: start: 20040303, end: 20040303

REACTIONS (5)
  - LOOSE STOOLS [None]
  - RASH [None]
  - RASH GENERALISED [None]
  - SWELLING FACE [None]
  - URTICARIA [None]
